FAERS Safety Report 8067596-2 (Version None)
Quarter: 2012Q1

REPORT INFORMATION
  Report Type: 
  Country: None (occurrence: None)
  Receive Date: 20120124
  Receipt Date: 20120119
  Transmission Date: 20120608
  Serious: Yes (Hospitalization, Disabling, Other)
  Sender: FDA-Public Use
  Company Number: US-PFIZER INC-2011272931

PATIENT
  Sex: Female

DRUGS (3)
  1. CHANTIX [Suspect]
     Indication: SMOKING CESSATION THERAPY
     Dosage: 0.5MG/ 1MG
     Dates: start: 20070901, end: 20071101
  2. SOMA [Concomitant]
     Indication: PAIN
     Dosage: UNK
     Dates: start: 20010101
  3. PERCOCET [Concomitant]
     Indication: PAIN
     Dosage: UNK
     Dates: start: 20010101

REACTIONS (8)
  - INTENTIONAL OVERDOSE [None]
  - ANXIETY [None]
  - CONFUSIONAL STATE [None]
  - SUICIDE ATTEMPT [None]
  - ABNORMAL BEHAVIOUR [None]
  - EMOTIONAL DISORDER [None]
  - DEPRESSION [None]
  - AGGRESSION [None]
